FAERS Safety Report 10503682 (Version 1)
Quarter: 2014Q4

REPORT INFORMATION
  Report Type: Spontaneous
  Country: US (occurrence: None)
  Receive Date: 20141007
  Receipt Date: 20141007
  Transmission Date: 20150528
  Serious: No
  Sender: FDA-Public Use
  Company Number: None

PATIENT
  Age: 64 Year
  Sex: Female
  Weight: 76.66 kg

DRUGS (3)
  1. LEVOFLOXACIN. [Suspect]
     Active Substance: LEVOFLOXACIN
     Indication: SINUSITIS
     Dosage: 7 DAYS + 3 DAYS 1 X DAILY MOUTH
     Route: 048
     Dates: start: 20140904, end: 20140914
  2. PRAVASTATIN [Concomitant]
     Active Substance: PRAVASTATIN\PRAVASTATIN SODIUM
  3. VIT D 3 [Concomitant]

REACTIONS (2)
  - Musculoskeletal pain [None]
  - Back pain [None]

NARRATIVE: CASE EVENT DATE: 20140908
